FAERS Safety Report 4992919-8 (Version None)
Quarter: 2006Q2

REPORT INFORMATION
  Report Type: 
  Country: None (occurrence: None)
  Receive Date: 20060504
  Receipt Date: 20050204
  Transmission Date: 20061013
  Serious: Yes (Hospitalization, Disabling, Other)
  Sender: FDA-Public Use
  Company Number: US-MERCK-0502USA00666

PATIENT
  Age: 61 Year
  Sex: Male
  Weight: 100 kg

DRUGS (4)
  1. VIOXX [Suspect]
     Indication: SPINAL CORD DISORDER
     Route: 048
     Dates: start: 20020130, end: 20030201
  2. VIOXX [Suspect]
     Route: 048
     Dates: start: 20020130, end: 20030201
  3. VIOXX [Suspect]
     Indication: ARTHRITIS
     Route: 048
     Dates: start: 20020130, end: 20030201
  4. VIOXX [Suspect]
     Route: 048
     Dates: start: 20020130, end: 20030201

REACTIONS (12)
  - ANXIETY [None]
  - BLOOD PRESSURE INCREASED [None]
  - CEREBRAL INFARCTION [None]
  - CEREBROVASCULAR ACCIDENT [None]
  - CHEST PAIN [None]
  - MITRAL VALVE INCOMPETENCE [None]
  - MUSCLE SPASMS [None]
  - RETINAL ARTERY EMBOLISM [None]
  - SLEEP DISORDER [None]
  - SPONDYLOLYSIS [None]
  - TRANSIENT ISCHAEMIC ATTACK [None]
  - TRICUSPID VALVE INCOMPETENCE [None]
